FAERS Safety Report 8380748-7 (Version None)
Quarter: 2012Q2

REPORT INFORMATION
  Report Type: 
  Country: None (occurrence: None)
  Receive Date: 20120523
  Receipt Date: 20120515
  Transmission Date: 20120825
  Serious: Yes (Hospitalization, Other)
  Sender: FDA-Public Use
  Company Number: GB-PFIZER INC-2011209147

PATIENT
  Age: 34 Year
  Sex: Female
  Weight: 99.8 kg

DRUGS (11)
  1. ANTI-D IMMUNOGLOBULIN [Concomitant]
  2. RITUXIMAB [Suspect]
     Indication: HAEMATOLOGY TEST ABNORMAL
     Dosage: 375 MG/M2, 2X/WEEK
     Route: 041
     Dates: start: 20100917, end: 20100924
  3. LANSOPRAZOLE [Suspect]
     Indication: GASTROOESOPHAGEAL REFLUX PROPHYLAXIS
     Dosage: 30 MG, 1X/DAY
     Route: 048
     Dates: start: 20100907, end: 20100928
  4. IMMUNE GLOBULIN (HUMAN) [Suspect]
     Indication: HAEMATOLOGY TEST ABNORMAL
     Dosage: 1000 MG/KG, 1X/DAY
     Route: 042
     Dates: start: 20100922, end: 20100923
  5. NORETHINDRONE [Suspect]
     Dosage: ONCE ONLY
     Route: 048
     Dates: start: 20100920, end: 20100920
  6. RITUXIMAB [Suspect]
     Indication: AUTOIMMUNE THROMBOCYTOPENIA
  7. IMMUNE GLOBULIN (HUMAN) [Suspect]
     Indication: AUTOIMMUNE THROMBOCYTOPENIA
  8. NPLATE [Suspect]
     Indication: IDIOPATHIC THROMBOCYTOPENIC PURPURA
     Dosage: 1 MG/KG, UNK
     Route: 058
     Dates: start: 20100920, end: 20100920
  9. VINCRISTINE [Concomitant]
  10. TRANEXAMIC ACID [Suspect]
     Indication: AUTOIMMUNE THROMBOCYTOPENIA
     Dosage: 1 DF, 4X/DAY
     Route: 048
     Dates: start: 20100922, end: 20100928
  11. DEXAMETHASONE [Suspect]
     Indication: ANTIEMETIC SUPPORTIVE CARE
     Dosage: UNK
     Route: 048
     Dates: start: 20100907, end: 20100910

REACTIONS (9)
  - MELAENA [None]
  - HAEMORRHAGE [None]
  - VAGINAL HAEMORRHAGE [None]
  - HAEMOGLOBIN DECREASED [None]
  - RECTAL HAEMORRHAGE [None]
  - RASH ERYTHEMATOUS [None]
  - RASH MACULO-PAPULAR [None]
  - ARTHRALGIA [None]
  - PURPURA [None]
